FAERS Safety Report 4647221-0 (Version None)
Quarter: 2005Q2

REPORT INFORMATION
  Report Type: 
  Country: None (occurrence: None)
  Receive Date: 20050428
  Receipt Date: 20050417
  Transmission Date: 20051028
  Serious: Yes (Other)
  Sender: FDA-Public Use
  Company Number: 200513604GDDC

PATIENT
  Age: 32 Year
  Sex: Female

DRUGS (3)
  1. ARAVA [Suspect]
     Indication: RHEUMATOID ARTHRITIS
     Route: 048
     Dates: start: 20050101, end: 20050301
  2. PROFENID [Concomitant]
     Indication: RHEUMATOID ARTHRITIS
     Dosage: DOSE: 100-200
     Dates: start: 20041101
  3. DI-ANTALVIC [Concomitant]
     Indication: RHEUMATOID ARTHRITIS
     Dosage: DOSE: 2/39
     Dates: start: 20041101

REACTIONS (1)
  - TRANSAMINASES INCREASED [None]
